FAERS Safety Report 9952574 (Version 1)
Quarter: 2014Q1

REPORT INFORMATION
  Report Type: Report from Study
  Country: US (occurrence: US)
  Receive Date: 20140304
  Receipt Date: 20140304
  Transmission Date: 20141002
  Serious: No
  Sender: FDA-Public Use
  Company Number: US-ABBVIE-13P-163-1073575-00

PATIENT
  Age: 66 Year
  Sex: Female

DRUGS (8)
  1. HUMIRA [Suspect]
     Indication: PRODUCT USED FOR UNKNOWN INDICATION
     Route: 058
     Dates: start: 20121217, end: 20121217
  2. HUMIRA [Suspect]
     Route: 058
     Dates: start: 20121224
  3. SYNTHROID [Concomitant]
     Indication: THYROIDECTOMY
     Route: 048
  4. METOPROLOL [Concomitant]
     Indication: HYPERTENSION
     Route: 048
  5. LISINIPRIL [Concomitant]
     Indication: HYPERTENSION
     Route: 048
  6. CELEXA [Concomitant]
     Indication: DEPRESSION
     Route: 048
  7. BLACK COHOSH [Concomitant]
     Indication: MENOPAUSAL SYMPTOMS
     Dates: start: 2012
  8. EVENING PRIMROSE [Concomitant]
     Indication: MENOPAUSAL SYMPTOMS
     Dates: start: 2012

REACTIONS (3)
  - Weight increased [Not Recovered/Not Resolved]
  - Cystitis [Unknown]
  - Micturition urgency [Not Recovered/Not Resolved]
